FAERS Safety Report 16122047 (Version 1)
Quarter: 2019Q2

REPORT INFORMATION
  Report Type: Spontaneous
  Country: US (occurrence: US)
  Receive Date: 20190326
  Receipt Date: 20190326
  Transmission Date: 20190711
  Serious: Yes (Disabling)
  Sender: FDA-Public Use
  Company Number: None

PATIENT
  Age: 45 Year
  Sex: Female
  Weight: 90 kg

DRUGS (10)
  1. MAGNESIUM CITRATE. [Concomitant]
     Active Substance: MAGNESIUM CITRATE
  2. VITAMIN D3 [Concomitant]
     Active Substance: CHOLECALCIFEROL
  3. COQ10 [Concomitant]
     Active Substance: UBIDECARENONE
  4. VITAMIN B COMPLEX [Concomitant]
     Active Substance: CYANOCOBALAMIN\DEXPANTHENOL\NIACINAMIDE\PYRIDOXINE HYDROCHLORIDE\RIBOFLAVIN 5^-PHOSPHATE SODIUM\THIAMINE HYDROCHLORIDE\VITAMIN B COMPLEX
  5. ACETYL L-CARNITINE [Concomitant]
     Active Substance: ACETYLCARNITINE
  6. GLUCOSAMINE [Concomitant]
     Active Substance: GLUCOSAMINE
  7. PEPPERMINT OIL [Concomitant]
     Active Substance: PEPPERMINT OIL
  8. ADVIL [Concomitant]
     Active Substance: IBUPROFEN
  9. DUCOSATE SODIUM [Concomitant]
  10. AIMOVIG [Suspect]
     Active Substance: ERENUMAB-AOOE
     Indication: MIGRAINE
     Dosage: ?          QUANTITY:1 INJECTION(S);OTHER FREQUENCY:ONCE MONTHLY;?
     Route: 030
     Dates: start: 20190301, end: 20190326

REACTIONS (4)
  - Rash [None]
  - Pruritus [None]
  - Pain [None]
  - Constipation [None]

NARRATIVE: CASE EVENT DATE: 20190303
